FAERS Safety Report 8072859-0 (Version None)
Quarter: 2012Q1

REPORT INFORMATION
  Report Type: 
  Country: None (occurrence: None)
  Receive Date: 20120120
  Receipt Date: 20120109
  Transmission Date: 20120608
  Serious: Yes (Death)
  Sender: FDA-Public Use
  Company Number: 2012MA000655

PATIENT
  Age: 55 Year
  Sex: Female

DRUGS (5)
  1. PAREGORIC LIQUID USP (ALPHARMA) [Suspect]
  2. PROPOXYPHENE HYDROCHLORIDE [Concomitant]
  3. TOPIRAMATE [Concomitant]
  4. NORPROPOXYPHENE [Concomitant]
  5. ETHANOL [Concomitant]

REACTIONS (4)
  - UNRESPONSIVE TO STIMULI [None]
  - TOXICITY TO VARIOUS AGENTS [None]
  - DRUG SCREEN POSITIVE [None]
  - HEPATIC CIRRHOSIS [None]
